FAERS Safety Report 10221977 (Version 1)
Quarter: 2014Q2

REPORT INFORMATION
  Report Type: Spontaneous
  Country: US (occurrence: None)
  Receive Date: 20140606
  Receipt Date: 20140606
  Transmission Date: 20141212
  Serious: Yes (Hospitalization)
  Sender: FDA-Public Use
  Company Number: None

PATIENT
  Age: 25 Year
  Sex: Female
  Weight: 54.43 kg

DRUGS (1)
  1. MUPIROCIN [Suspect]
     Indication: MASTITIS
     Dosage: 3X A DAY, THREE TIMES DAILY, APPLIED TO A SURFACE, USUALLY THE SKIN
     Dates: start: 20140523, end: 20140604

REACTIONS (2)
  - Hypersensitivity [None]
  - Ear disorder [None]
